FAERS Safety Report 20047759 (Version 1)
Quarter: 2021Q4

REPORT INFORMATION
  Report Type: Spontaneous
  Country: US (occurrence: US)
  Receive Date: 20211109
  Receipt Date: 20211109
  Transmission Date: 20220303
  Serious: No
  Sender: FDA-Public Use
  Company Number: US-BAYER-2021A244954

PATIENT
  Age: 6 Year
  Sex: Female

DRUGS (2)
  1. CLARITIN [Suspect]
     Active Substance: LORATADINE
     Indication: Hypersensitivity
     Route: 048
     Dates: start: 20210611, end: 20210611
  2. CLARITIN [Suspect]
     Active Substance: LORATADINE
     Indication: Feeling cold

REACTIONS (3)
  - Rash [Unknown]
  - Rash pruritic [Unknown]
  - Pain [Unknown]
